FAERS Safety Report 7751287-9 (Version None)
Quarter: 2011Q3

REPORT INFORMATION
  Report Type: 
  Country: None (occurrence: None)
  Receive Date: 20110914
  Receipt Date: 20110912
  Transmission Date: 20111222
  Serious: Yes (Death)
  Sender: FDA-Public Use
  Company Number: BR-B.I. PHARMACEUTICALS,INC./RIDGEFIELD-2011-BR-00904BR

PATIENT
  Age: 70 Year
  Sex: Male

DRUGS (8)
  1. PRADAXA [Suspect]
     Indication: PROPHYLAXIS
  2. PRADAXA [Suspect]
     Indication: CEREBROVASCULAR ACCIDENT PROPHYLAXIS
     Dosage: 300 MG
     Route: 048
     Dates: start: 20110831, end: 20110910
  3. BAMIFIX [Concomitant]
     Indication: CHRONIC OBSTRUCTIVE PULMONARY DISEASE
     Dosage: 600 MG
     Route: 048
  4. COUMADIN [Concomitant]
     Indication: PROPHYLAXIS
  5. PROPAFENONE HCL [Concomitant]
     Indication: ATRIAL FIBRILLATION
     Dosage: 600 MG
     Route: 048
  6. FORMOTEROL FUMARATE [Concomitant]
     Indication: CHRONIC OBSTRUCTIVE PULMONARY DISEASE
     Route: 055
  7. COUMADIN [Concomitant]
     Indication: CEREBROVASCULAR ACCIDENT PROPHYLAXIS
     Route: 048
  8. CARDIZEM [Concomitant]
     Indication: ATRIAL FIBRILLATION

REACTIONS (4)
  - PNEUMONIA [None]
  - CARDIOMYOPATHY [None]
  - RESPIRATORY FAILURE [None]
  - BRONCHOSPASM [None]
